FAERS Safety Report 7730483-0 (Version None)
Quarter: 2011Q3

REPORT INFORMATION
  Report Type: 
  Country: None (occurrence: None)
  Receive Date: 20110906
  Receipt Date: 20110831
  Transmission Date: 20111222
  Serious: Yes (Hospitalization)
  Sender: FDA-Public Use
  Company Number: IT-ABBOTT-11P-083-0850381-00

PATIENT
  Sex: Female

DRUGS (5)
  1. XANAX [Suspect]
     Indication: PRODUCT USED FOR UNKNOWN INDICATION
     Dosage: DAILY DOSE: 0.5MG
     Route: 048
  2. DEPAKENE [Concomitant]
     Indication: PRODUCT USED FOR UNKNOWN INDICATION
     Dosage: DAILY DOSE: 1000MG
     Route: 048
  3. CLARITHROMYCIN [Suspect]
     Indication: PYREXIA
     Route: 048
     Dates: start: 20110822, end: 20110826
  4. RAMIPRIL [Concomitant]
     Indication: PRODUCT USED FOR UNKNOWN INDICATION
     Dosage: DAILY DOSE: 5MG
     Route: 048
  5. LEVOFLOXACIN [Suspect]
     Indication: PYREXIA
     Route: 048
     Dates: start: 20110822, end: 20110825

REACTIONS (2)
  - DERMATITIS EXFOLIATIVE [None]
  - TOXIC EPIDERMAL NECROLYSIS [None]
